FAERS Safety Report 5333103-8 (Version None)
Quarter: 2007Q2

REPORT INFORMATION
  Report Type: 
  Country: None (occurrence: None)
  Receive Date: 20070524
  Receipt Date: 20070515
  Transmission Date: 20071010
  Serious: Yes (Disabling)
  Sender: FDA-Public Use
  Company Number: US-JNJFOC-20060704760

PATIENT
  Sex: Female
  Weight: 80.29 kg

DRUGS (7)
  1. REMICADE [Suspect]
     Route: 042
  2. REMICADE [Suspect]
     Indication: CROHN'S DISEASE
     Route: 042
  3. PRENATAL VITAMINS [Concomitant]
     Indication: VITAMIN SUPPLEMENTATION
     Route: 048
  4. PROBIOTIC [Concomitant]
     Indication: GASTROINTESTINAL DISORDER
     Dosage: 2 PILLS PER DAY
  5. LYPRINOL [Concomitant]
     Indication: GASTROINTESTINAL DISORDER
     Dosage: 2 PILLS 2 TIMES DAILY
     Route: 048
  6. PAPAYA ENZYME [Concomitant]
     Dosage: 2-3 PILLS PRIOR TO EACH MEAL
     Route: 048
  7. VALTREX [Concomitant]
     Indication: GENITAL HERPES
     Dosage: 1 DAY FOR 36 WEEKS
     Route: 048

REACTIONS (9)
  - ABASIA [None]
  - ABDOMINAL PAIN [None]
  - ARTHRALGIA [None]
  - BRONCHIAL DISORDER [None]
  - CHOLELITHIASIS [None]
  - DRUG EXPOSURE DURING PREGNANCY [None]
  - JOINT STIFFNESS [None]
  - METRORRHAGIA [None]
  - VOMITING [None]
